FAERS Safety Report 9219068 (Version 1)
Quarter: 2013Q2

REPORT INFORMATION
  Report Type: Spontaneous
  Country: US (occurrence: None)
  Receive Date: 20130405
  Receipt Date: 20130405
  Transmission Date: 20140414
  Serious: Yes (Hospitalization)
  Sender: FDA-Public Use
  Company Number: None

PATIENT
  Age: 45 Year
  Sex: Female

DRUGS (1)
  1. ENBREL 50 MG [Suspect]
     Dosage: 50 MG QW SQ
     Route: 058
     Dates: start: 20121018, end: 20121220

REACTIONS (4)
  - Pneumonia [None]
  - Pulmonary mass [None]
  - Swelling [None]
  - Headache [None]
